FAERS Safety Report 9274633 (Version 1)
Quarter: 2013Q2

REPORT INFORMATION
  Report Type: Spontaneous
  Country: US (occurrence: None)
  Receive Date: 20130430
  Receipt Date: 20130430
  Transmission Date: 20140414
  Serious: No
  Sender: FDA-Public Use
  Company Number: None

PATIENT
  Sex: Male

DRUGS (1)
  1. PEGASYS [Suspect]
     Dosage: ^KEEP REFRIGERATED^
     Route: 058

REACTIONS (2)
  - Pruritus [None]
  - Hyperaesthesia [None]
